FAERS Safety Report 9826076 (Version 1)
Quarter: 2013Q4

REPORT INFORMATION
  Report Type: Spontaneous
  Country: US (occurrence: None)
  Receive Date: 20131028
  Receipt Date: 20131028
  Transmission Date: 20140711
  Serious: Yes (Other)
  Sender: FDA-Public Use
  Company Number: 2013US002303

PATIENT
  Age: 73 Year
  Sex: Male
  Weight: 97 kg

DRUGS (16)
  1. ICLUSIG [Suspect]
     Indication: CHRONIC MYELOID LEUKAEMIA
     Route: 048
     Dates: start: 201306, end: 201307
  2. ACYCLOVIR (ACYCLOVIR) [Concomitant]
  3. ALLOPURINOL (ALLOPURINOL) [Concomitant]
  4. ASPIRIN (ACETYLSALICYLIC ACID) [Concomitant]
  5. CETIRIZINE (CETIRIZINE) [Concomitant]
  6. FLUCONAZOLE) FLUCONAZOLE) [Concomitant]
  7. FOLIC ACID (FOLIC ACID) [Concomitant]
  8. FUROSEMIDE (FUROSEMIDE) [Concomitant]
  9. HYDROXYUREA (HYDROXYUREA) [Concomitant]
  10. MULTIVITAMIN (VITAMINS NOS) [Concomitant]
  11. PREDNISONE (PREDNISONE) [Concomitant]
  12. PROPANTHELINE (PROPANTHELINE) [Concomitant]
  13. OMEPRAZOLE (OMEPRAZOLE) [Concomitant]
  14. INSULIN GLARGINE (INSULIN GLARGINE) [Concomitant]
  15. INSULIN LISPRO (INSULIN LISPRO) [Concomitant]
  16. SIMVASTATIN (SIMVASTATIN) [Concomitant]

REACTIONS (3)
  - Pancytopenia [None]
  - White blood cell count decreased [None]
  - Lipase increased [None]
